FAERS Safety Report 8954253 (Version 2)
Quarter: 2012Q4

REPORT INFORMATION
  Report Type: 
  Country: US (occurrence: US)
  Receive Date: 20121207
  Receipt Date: 20121231
  Transmission Date: 20130627
  Serious: Yes (Other)
  Sender: FDA-Public Use
  Company Number: PHEH2012US004672

PATIENT
  Age: 44 Year
  Sex: Female
  Weight: 180 kg

DRUGS (10)
  1. GILENYA [Suspect]
     Indication: MULTIPLE SCLEROSIS
     Dosage: 0.5 mg, QD
     Route: 048
     Dates: start: 20120112, end: 20121120
  2. ZELDOX [Concomitant]
  3. PAXIL [Concomitant]
     Indication: DEPRESSION
     Dosage: 40 mg, UNK
     Route: 048
  4. ZANISLEX [Concomitant]
  5. GEODON [Concomitant]
     Indication: DEPRESSION
     Dosage: 80 mg, UNK
     Route: 048
  6. COGENTIN [Concomitant]
     Dosage: 0.5 mg, BID
     Route: 048
  7. BACLOFEN [Concomitant]
  8. ANTICHOLINERGIC AGENTS [Concomitant]
  9. TOPAMAX [Concomitant]
     Indication: DEPRESSION
     Dosage: 50 mg, UNK
     Route: 048
  10. MARINOL [Concomitant]
     Indication: DEPRESSION
     Dosage: 1 DF, QD
     Route: 048

REACTIONS (10)
  - Blindness [Not Recovered/Not Resolved]
  - Diplopia [Unknown]
  - Vitreous floaters [Not Recovered/Not Resolved]
  - Visual acuity reduced [Not Recovered/Not Resolved]
  - Pain in extremity [Recovering/Resolving]
  - Erythema [Recovering/Resolving]
  - Constipation [Not Recovered/Not Resolved]
  - Nausea [Not Recovered/Not Resolved]
  - Vision blurred [Not Recovered/Not Resolved]
  - Headache [Not Recovered/Not Resolved]
